FAERS Safety Report 9607256 (Version 6)
Quarter: 2014Q2

REPORT INFORMATION
  Report Type: Spontaneous
  Country: US (occurrence: US)
  Receive Date: 20131009
  Receipt Date: 20140411
  Transmission Date: 20141212
  Serious: No
  Sender: FDA-Public Use
  Company Number: US-009507513-1310USA000117

PATIENT
  Age: 35 Year
  Sex: Female
  Weight: 71.66 kg

DRUGS (12)
  1. PEGINTRON [Suspect]
     Indication: HEPATITIS C
     Dosage: 0.5 (UNITS UNKNOWN), Q7DAYS, REDIPEN
     Route: 058
     Dates: start: 20130807, end: 20140212
  2. REBETOL [Suspect]
     Indication: HEPATITIS C
     Dosage: TOTAL DAILY DOSE: 500 MG, BID (TWICE A DAY)
     Route: 048
     Dates: start: 20130910, end: 20140213
  3. REBETOL [Suspect]
     Dosage: TOTAL DAILY DOSE: 600 MG
     Dates: start: 20130807, end: 20130909
  4. VICTRELIS [Suspect]
     Indication: HEPATITIS C
     Dosage: 800 MG, TID
     Route: 048
     Dates: start: 20130830, end: 20140213
  5. LAMICTAL [Concomitant]
     Dosage: DAILY
  6. TOPAMAX [Concomitant]
     Dosage: UNK, BID
     Route: 048
  7. SINGULAIR [Concomitant]
     Dosage: UNK, DAILY
     Route: 048
  8. CELEXA [Concomitant]
     Dosage: 1 TABLET, DAILY DOSE: 10 MG
     Dates: start: 20130910
  9. OMEPRAZOLE [Concomitant]
     Dosage: UNK, BID
     Dates: start: 20131009
  10. PROMETHAZINE [Concomitant]
     Dosage: UNK, AS NEEDED
  11. IMODIUM [Concomitant]
     Dosage: DAILY DOSE: 10MG
     Dates: start: 20130924
  12. NORCO [Concomitant]
     Dosage: UNK, AS NEEDED

REACTIONS (10)
  - Oral mucosal blistering [Unknown]
  - Influenza like illness [Unknown]
  - Platelet count decreased [Unknown]
  - Wrong technique in drug usage process [Unknown]
  - Pain in extremity [Unknown]
  - Anaemia [Not Recovered/Not Resolved]
  - Vomiting [Unknown]
  - Injection site pain [Recovering/Resolving]
  - Injection site erythema [Recovering/Resolving]
  - Road traffic accident [Unknown]
